FAERS Safety Report 4690068-X (Version None)
Quarter: 2005Q2

REPORT INFORMATION
  Report Type: 
  Country: None (occurrence: None)
  Receive Date: 20050614
  Receipt Date: 20050531
  Transmission Date: 20051028
  Serious: Yes (Life-Threatening, Hospitalization)
  Sender: FDA-Public Use
  Company Number: 2005-00848

PATIENT
  Age: 68 Year
  Sex: Female
  Weight: 55 kg

DRUGS (6)
  1. VELCADE [Suspect]
     Indication: MULTIPLE MYELOMA
     Dosage: 1.94 MG, 2/WEEK, IV BOLUS
     Route: 040
     Dates: start: 20050318, end: 20050407
  2. BONALON          (ALENDRONATE SODIUM) [Concomitant]
  3. GASTER OD                 (FAMOTIDINE) [Concomitant]
  4. MUCOSTA                   (REBAMIPIDE) [Concomitant]
  5. ALFAROL             (ALFACALCIDOL) [Concomitant]
  6. LOXONIN            (LOXOPROFEN SODIUM) [Concomitant]

REACTIONS (39)
  - ACUTE RESPIRATORY DISTRESS SYNDROME [None]
  - ALANINE AMINOTRANSFERASE INCREASED [None]
  - ASPARTATE AMINOTRANSFERASE INCREASED [None]
  - BLOOD CALCIUM DECREASED [None]
  - BLOOD CREATINE PHOSPHOKINASE INCREASED [None]
  - BLOOD CREATININE INCREASED [None]
  - BLOOD GLUCOSE INCREASED [None]
  - BLOOD LACTATE DEHYDROGENASE INCREASED [None]
  - BLOOD SODIUM DECREASED [None]
  - BLOOD UREA INCREASED [None]
  - BREATH SOUNDS DECREASED [None]
  - BRONCHIECTASIS [None]
  - C-REACTIVE PROTEIN INCREASED [None]
  - CHOKING [None]
  - CYTOLOGY ABNORMAL [None]
  - DECREASED APPETITE [None]
  - DIARRHOEA [None]
  - HAEMATOCRIT DECREASED [None]
  - HAEMOGLOBIN DECREASED [None]
  - HEPATIC FUNCTION ABNORMAL [None]
  - HYPERTHERMIA [None]
  - INTERSTITIAL LUNG DISEASE [None]
  - LABORATORY TEST ABNORMAL [None]
  - LUNG DISORDER [None]
  - LYMPHOCYTE COUNT INCREASED [None]
  - MONOCYTE PERCENTAGE INCREASED [None]
  - NEUTROPHIL PERCENTAGE DECREASED [None]
  - PLATELET COUNT DECREASED [None]
  - PLEURAL EFFUSION [None]
  - PNEUMOCYSTIS JIROVECI PNEUMONIA [None]
  - PNEUMOTHORAX [None]
  - POST PROCEDURAL PAIN [None]
  - PROTEIN TOTAL INCREASED [None]
  - PULMONARY FIBROSIS [None]
  - RED BLOOD CELL COUNT DECREASED [None]
  - RENAL IMPAIRMENT [None]
  - RESPIRATORY DISTRESS [None]
  - SERUM FERRITIN INCREASED [None]
  - WHITE BLOOD CELL COUNT DECREASED [None]
